FAERS Safety Report 15962433 (Version 3)
Quarter: 2019Q1

REPORT INFORMATION
  Report Type: Report from Study
  Country: US (occurrence: US)
  Receive Date: 20190214
  Receipt Date: 20190325
  Transmission Date: 20190417
  Serious: Yes (Hospitalization, Other)
  Sender: FDA-Public Use
  Company Number: US-GILEAD-2019-0390753

PATIENT
  Age: 71 Year
  Sex: Female

DRUGS (5)
  1. TADALAFIL. [Concomitant]
     Active Substance: TADALAFIL
  2. AMBRISENTAN [Suspect]
     Active Substance: AMBRISENTAN
     Dosage: 10 MG, QD
     Route: 065
     Dates: start: 20190226
  3. ORENITRAM [Concomitant]
     Active Substance: TREPROSTINIL
  4. XARELTO [Concomitant]
     Active Substance: RIVAROXABAN
  5. AMBRISENTAN [Suspect]
     Active Substance: AMBRISENTAN
     Indication: PULMONARY ARTERIAL HYPERTENSION
     Dosage: 5 MG, PRN
     Route: 065
     Dates: start: 2012

REACTIONS (4)
  - Pulmonary hypertension [Unknown]
  - Ear neoplasm [Not Recovered/Not Resolved]
  - Dyspnoea exertional [Not Recovered/Not Resolved]
  - Vocal cord paralysis [Not Recovered/Not Resolved]
